FAERS Safety Report 19126250 (Version 1)
Quarter: 2021Q2

REPORT INFORMATION
  Report Type: Spontaneous
  Country: BR (occurrence: BR)
  Receive Date: 20210412
  Receipt Date: 20210412
  Transmission Date: 20210717
  Serious: Yes (Other)
  Sender: FDA-Public Use
  Company Number: BR-PFIZER INC-2021372398

PATIENT
  Sex: Female

DRUGS (2)
  1. GEODON [Suspect]
     Active Substance: ZIPRASIDONE HYDROCHLORIDE\ZIPRASIDONE MESYLATE
     Indication: GENERALISED ANXIETY DISORDER
     Dosage: UNK
     Dates: end: 201806
  2. GEODON [Suspect]
     Active Substance: ZIPRASIDONE HYDROCHLORIDE\ZIPRASIDONE MESYLATE
     Indication: OBSESSIVE-COMPULSIVE DISORDER

REACTIONS (17)
  - Bruxism [Not Recovered/Not Resolved]
  - Compulsions [Unknown]
  - Somnolence [Unknown]
  - Dizziness [Unknown]
  - Oral disorder [Not Recovered/Not Resolved]
  - Dyskinesia [Unknown]
  - Musculoskeletal stiffness [Unknown]
  - Mania [Unknown]
  - Tongue disorder [Unknown]
  - Panic reaction [Unknown]
  - Salivary hypersecretion [Not Recovered/Not Resolved]
  - Off label use [Unknown]
  - Feeling abnormal [Unknown]
  - Dependence [Recovered/Resolved]
  - Speech disorder [Unknown]
  - Dysphemia [Unknown]
  - Personality disorder [Unknown]
